FAERS Safety Report 8815458 (Version 1)
Quarter: 2012Q4

REPORT INFORMATION
  Report Type: 
  Country: US (occurrence: US)
  Receive Date: 20120928
  Receipt Date: 20120928
  Transmission Date: 20130627
  Serious: No
  Sender: FDA-Public Use
  Company Number: US-BAYER-2012-091616

PATIENT
  Age: 59 Year
  Sex: Male

DRUGS (2)
  1. LEVITRA [Suspect]
     Indication: ERECTILE DYSFUNCTION
     Dosage: Daily dose 10 mg
     Route: 048
     Dates: start: 201203, end: 201203
  2. LEVITRA [Suspect]
     Indication: ERECTILE DYSFUNCTION
     Dosage: 20 mg, QD
     Route: 048
     Dates: start: 20120829, end: 20120830

REACTIONS (2)
  - Erectile dysfunction [None]
  - Erectile dysfunction [None]
